FAERS Safety Report 10058956 (Version 1)
Quarter: 2014Q2

REPORT INFORMATION
  Report Type: Spontaneous
  Country: US (occurrence: US)
  Receive Date: 20140404
  Receipt Date: 20140404
  Transmission Date: 20141212
  Serious: Yes (Hospitalization)
  Sender: FDA-Public Use
  Company Number: US-MALLINCKRODT-T201401679

PATIENT
  Age: 55 Year
  Sex: Male

DRUGS (1)
  1. GABLOFEN [Suspect]
     Indication: MUSCLE SPASTICITY
     Dosage: 735.1 MCG
     Route: 037

REACTIONS (7)
  - Sepsis [Unknown]
  - Drug withdrawal syndrome [Unknown]
  - Convulsion [Unknown]
  - Pyrexia [Unknown]
  - Tachycardia [Unknown]
  - Mental status changes [Unknown]
  - Unresponsive to stimuli [Unknown]
